FAERS Safety Report 25817486 (Version 2)
Quarter: 2025Q4

REPORT INFORMATION
  Report Type: Spontaneous
  Country: EU (occurrence: EU)
  Receive Date: 20250918
  Receipt Date: 20251010
  Transmission Date: 20260118
  Serious: Yes (Other)
  Sender: AMGEN
  Company Number: EU-AMGEN-FRASP2025181096

PATIENT
  Age: 55 Year
  Sex: Male

DRUGS (1)
  1. ARANESP [Suspect]
     Active Substance: DARBEPOETIN ALFA
     Indication: Product used for unknown indication
     Dosage: UNK UNK, QWK (50 MICROGARM) (ONE SYRINGE PER WEEK)
     Route: 040
     Dates: start: 20100811

REACTIONS (1)
  - Dialysis [Unknown]
